FAERS Safety Report 6532005-9 (Version None)
Quarter: 2009Q4

REPORT INFORMATION
  Report Type: 
  Country: None (occurrence: None)
  Receive Date: 20091223
  Receipt Date: 20090429
  Transmission Date: 20100525
  Serious: Yes (Hospitalization, Other)
  Sender: FDA-Public Use
  Company Number: 2009182719

PATIENT
  Age: 65 Year
  Sex: Male

DRUGS (12)
  1. ATENOLOL [Suspect]
     Indication: ARRHYTHMIA
     Dosage: 25 GM, 1X/DAY, ORAL ; 25 MG, 1X/DAY
     Route: 048
     Dates: end: 20070101
  2. BENICAR HCT [Suspect]
     Indication: HYPERTENSION
     Dosage: 40/25 MG, 1X/DAY, ORAL ; 40/25 MG, 1X/DAY, ORAL
     Route: 048
     Dates: end: 20070101
  3. BENICAR HCT [Suspect]
     Indication: HYPERTENSION
     Dosage: 40/25 MG, 1X/DAY, ORAL ; 40/25 MG, 1X/DAY, ORAL
     Route: 048
     Dates: start: 20081001, end: 20080101
  4. MERCAPTOPURINE [Suspect]
     Dosage: 100 MG, 1X/DAY ; 100 MG, 1X/DAY
     Dates: end: 20070101
  5. PREDNISONE [Suspect]
     Dates: end: 20080101
  6. VITAMIN D [Concomitant]
  7. SERTRALINE HCL [Concomitant]
  8. TEMAZEPAM [Concomitant]
  9. KLOR-CON [Concomitant]
  10. CALCIUM (CALCIUM) [Concomitant]
  11. ASPIRIN [Concomitant]
  12. MULTI-VITAMINS [Concomitant]

REACTIONS (15)
  - ANAEMIA [None]
  - BLOOD CHLORIDE INCREASED [None]
  - COELIAC DISEASE [None]
  - CONTUSION [None]
  - DEHYDRATION [None]
  - DIARRHOEA [None]
  - HEART RATE DECREASED [None]
  - HYPERTENSION [None]
  - LETHARGY [None]
  - MALNUTRITION [None]
  - PLATELET COUNT DECREASED [None]
  - SKIN ATROPHY [None]
  - TRANSFERRIN SATURATION INCREASED [None]
  - WEIGHT DECREASED [None]
  - WHITE BLOOD CELL COUNT DECREASED [None]
